FAERS Safety Report 25260222 (Version 1)
Quarter: 2025Q2

REPORT INFORMATION
  Report Type: Spontaneous
  Country: US (occurrence: None)
  Receive Date: 20250501
  Receipt Date: 20250501
  Transmission Date: 20250716
  Serious: Yes (Hospitalization)
  Sender: FDA-CTU
  Company Number: None

PATIENT
  Age: 68 Year
  Sex: Male

DRUGS (2)
  1. LISINOPRIL [Suspect]
     Active Substance: LISINOPRIL
     Indication: Hypertension
     Dosage: 0.50 UNK-UNKNOWN DAILY ORAL ?
     Route: 048
     Dates: start: 20120614, end: 20250320
  2. EVEROLIMUS [Suspect]
     Active Substance: EVEROLIMUS
     Dosage: 1.00  UNK-UNKNOWN DAILY ORAL
     Route: 048
     Dates: start: 20250304

REACTIONS (2)
  - Angioedema [None]
  - Drug hypersensitivity [None]

NARRATIVE: CASE EVENT DATE: 20250320
